FAERS Safety Report 10061942 (Version 1)
Quarter: 2014Q2

REPORT INFORMATION
  Report Type: Spontaneous
  Country: FR (occurrence: FR)
  Receive Date: 20140407
  Receipt Date: 20140407
  Transmission Date: 20141212
  Serious: Yes (Other)
  Sender: FDA-Public Use
  Company Number: FR-ASTELLAS-2014EU003595

PATIENT
  Age: 31 Year
  Sex: Female

DRUGS (8)
  1. TACROLIMUS SYSTEMIC [Suspect]
     Indication: RENAL TRANSPLANT
     Dosage: UNK
     Route: 065
  2. MYCOPHENOLIC ACID [Suspect]
     Indication: RENAL TRANSPLANT
     Dosage: UNK
     Route: 065
  3. PREDNISONE [Suspect]
     Indication: RENAL TRANSPLANT
     Dosage: UNK
     Route: 065
  4. TRIMETHOPRIM SULFAMETHOXAZOLE [Suspect]
     Dosage: UNK
     Route: 065
  5. VALGANCICLOVIR [Suspect]
     Dosage: UNK
     Route: 065
  6. RITUXIMAB [Concomitant]
     Dosage: 375 MG/M2, UNKNOWN/D
     Route: 065
  7. IMMUNOGLOBULIN                     /07494701/ [Concomitant]
     Dosage: UNK
     Route: 065
  8. ANTITHYMOCYTE IMMUNOGLOBULIN [Concomitant]
     Dosage: UNK
     Route: 065

REACTIONS (2)
  - Autoimmune neutropenia [Recovered/Resolved]
  - Transplant rejection [Unknown]
